FAERS Safety Report 7458458-X (Version None)
Quarter: 2011Q2

REPORT INFORMATION
  Report Type: 
  Country: None (occurrence: None)
  Receive Date: 20110504
  Receipt Date: 20110425
  Transmission Date: 20111010
  Serious: Yes (Other)
  Sender: FDA-Public Use
  Company Number: B0716744A

PATIENT
  Sex: Male
  Weight: 70 kg

DRUGS (1)
  1. FLIXONASE [Suspect]
     Indication: SINUSITIS
     Dosage: 220MCG PER DAY
     Route: 065
     Dates: start: 20110218

REACTIONS (2)
  - EPISTAXIS [None]
  - NASAL MUCOSA ATROPHY [None]
